FAERS Safety Report 24024765 (Version 4)
Quarter: 2024Q3

REPORT INFORMATION
  Report Type: Report from Study
  Country: RO (occurrence: RO)
  Receive Date: 20240628
  Receipt Date: 20240710
  Transmission Date: 20241017
  Serious: No
  Sender: ROCHE
  Company Number: RO-ROCHE-3442082

PATIENT
  Age: 65 Year
  Sex: Female
  Weight: 60.0 kg

DRUGS (1)
  1. PHESGO [Suspect]
     Active Substance: HYALURONIDASE-ZZXF\PERTUZUMAB\TRASTUZUMAB
     Indication: Breast cancer
     Dosage: DOSE: 600MG/600MG
     Route: 058

REACTIONS (4)
  - Malaise [Unknown]
  - Thermal burn [Unknown]
  - Discoloured vomit [Unknown]
  - Diarrhoea [Unknown]
